FAERS Safety Report 20632091 (Version 1)
Quarter: 2022Q1

REPORT INFORMATION
  Report Type: Spontaneous
  Country: US (occurrence: None)
  Receive Date: 20220324
  Receipt Date: 20220324
  Transmission Date: 20220424
  Serious: Yes (Death)
  Sender: FDA-Public Use
  Company Number: None

PATIENT
  Age: 77 Year
  Sex: Female
  Weight: 98.02 kg

DRUGS (9)
  1. AVASTIN [Suspect]
     Active Substance: BEVACIZUMAB
     Indication: Rectosigmoid cancer
     Dosage: FREQUENCY : EVERY OTHER WEEK;?
     Route: 042
     Dates: start: 202106, end: 20220213
  2. ALBUTEROL [Concomitant]
     Active Substance: ALBUTEROL
  3. AMLODIPINE [Concomitant]
     Active Substance: AMLODIPINE BESYLATE
  4. FLUOROURACIL [Concomitant]
     Active Substance: FLUOROURACIL
  5. FUROSEMIDE [Concomitant]
     Active Substance: FUROSEMIDE
  6. LATANOPROST [Concomitant]
     Active Substance: LATANOPROST
  7. LEUCOVORIN [Concomitant]
     Active Substance: LEUCOVORIN
  8. METOPROLOL [Concomitant]
     Active Substance: METOPROLOL
  9. POTASSIUM [Concomitant]
     Active Substance: POTASSIUM

REACTIONS (1)
  - Death [None]

NARRATIVE: CASE EVENT DATE: 20220213
